FAERS Safety Report 16290108 (Version 1)
Quarter: 2019Q2

REPORT INFORMATION
  Report Type: Spontaneous
  Country: US (occurrence: US)
  Receive Date: 20190508
  Receipt Date: 20190508
  Transmission Date: 20190711
  Serious: No
  Sender: FDA-Public Use
  Company Number: None

PATIENT
  Age: 59 Year
  Sex: Female
  Weight: 76.5 kg

DRUGS (2)
  1. DULOXETINE DR 60MG CAPSULES GENERIC FOR CYMBALTA [Suspect]
     Active Substance: DULOXETINE
     Indication: DEPRESSION
     Dosage: ?          QUANTITY:2 CAPSULE(S);?
     Route: 048
     Dates: start: 20190411, end: 20190508
  2. DULOXETINE DR 60MG CAPSULES GENERIC FOR CYMBALTA [Suspect]
     Active Substance: DULOXETINE
     Indication: ANXIETY
     Dosage: ?          QUANTITY:2 CAPSULE(S);?
     Route: 048
     Dates: start: 20190411, end: 20190508

REACTIONS (6)
  - Sleep disorder [None]
  - Product substitution issue [None]
  - Anger [None]
  - Drug ineffective [None]
  - Abnormal dreams [None]
  - Irritability [None]

NARRATIVE: CASE EVENT DATE: 20190411
